FAERS Safety Report 5306581-8 (Version None)
Quarter: 2007Q2

REPORT INFORMATION
  Report Type: 
  Country: None (occurrence: None)
  Receive Date: 20070424
  Receipt Date: 20070416
  Transmission Date: 20071010
  Serious: Yes (Other)
  Sender: FDA-Public Use
  Company Number: CH-PFIZER INC-2007030002

PATIENT
  Age: 83 Year
  Sex: Male

DRUGS (6)
  1. ZOLOFT [Suspect]
     Indication: DEPRESSION
     Route: 048
     Dates: start: 20061007
  2. CLOZAPINE [Suspect]
     Indication: DELIRIUM
     Route: 048
     Dates: start: 20070205
  3. CLOZAPINE [Suspect]
     Indication: DEMENTIA
  4. TRITTICO [Concomitant]
     Indication: DYSTHYMIC DISORDER
     Route: 048
     Dates: start: 20070212
  5. NEURONTIN [Concomitant]
     Indication: CYCLOTHYMIC DISORDER
     Route: 048
     Dates: start: 20070103
  6. MEMANTINE HCL [Concomitant]
     Indication: DEMENTIA ALZHEIMER'S TYPE
     Route: 048

REACTIONS (1)
  - MYOCLONUS [None]
